FAERS Safety Report 21932377 (Version 2)
Quarter: 2023Q1

REPORT INFORMATION
  Report Type: Spontaneous
  Country: BR (occurrence: None)
  Receive Date: 20230131
  Receipt Date: 20230322
  Transmission Date: 20230417
  Serious: Yes (Other)
  Sender: FDA-Public Use
  Company Number: 2023A023844

PATIENT
  Sex: Male
  Weight: 92 kg

DRUGS (2)
  1. CALQUENCE [Suspect]
     Active Substance: ACALABRUTINIB
     Route: 048
  2. CALQUENCE [Suspect]
     Active Substance: ACALABRUTINIB
     Route: 050
     Dates: end: 20230113

REACTIONS (2)
  - Thrombocytopenia [Recovered/Resolved]
  - Condition aggravated [Unknown]
